FAERS Safety Report 14173932 (Version 1)
Quarter: 2017Q4

REPORT INFORMATION
  Report Type: Spontaneous
  Country: CO (occurrence: CO)
  Receive Date: 20171109
  Receipt Date: 20171109
  Transmission Date: 20180321
  Serious: Yes (Other)
  Sender: FDA-Public Use
  Company Number: CO-CELGENEUS-COL-20170904407

PATIENT
  Age: 69 Year
  Sex: Male

DRUGS (1)
  1. VIDAZA [Suspect]
     Active Substance: AZACITIDINE
     Indication: ACUTE MYELOID LEUKAEMIA
     Dosage: 100 MILLIGRAM
     Route: 058
     Dates: start: 20150801, end: 20170927

REACTIONS (4)
  - Mucosal ulceration [Unknown]
  - Blood count abnormal [Unknown]
  - Glossitis [Unknown]
  - Inflammation [Unknown]

NARRATIVE: CASE EVENT DATE: 20170909
